FAERS Safety Report 12606050 (Version 3)
Quarter: 2019Q4

REPORT INFORMATION
  Report Type: Spontaneous
  Country: US (occurrence: US)
  Receive Date: 20160729
  Receipt Date: 20191126
  Transmission Date: 20200122
  Serious: No
  Sender: FDA-Public Use
  Company Number: US-PFIZER INC-2016356632

PATIENT
  Age: 65 Year
  Sex: Female

DRUGS (3)
  1. PRISTIQ EXTENDED-RELEASE [Suspect]
     Active Substance: DESVENLAFAXINE SUCCINATE
     Dosage: UNK
  2. PRISTIQ EXTENDED-RELEASE [Suspect]
     Active Substance: DESVENLAFAXINE SUCCINATE
     Dosage: UNK, ALTERNATE DAY (EVERY OTHER DAY)
  3. PRISTIQ EXTENDED-RELEASE [Suspect]
     Active Substance: DESVENLAFAXINE SUCCINATE
     Dosage: UNK, (EVERY 2 DAYS TO TRY TO STRETCH THEM OUT AND SHE WAS NOT EVEN SUPPOSED TO STOP THIS MEDICINE)

REACTIONS (2)
  - Intentional product use issue [Unknown]
  - Drug withdrawal syndrome [Unknown]
